FAERS Safety Report 15200107 (Version 2)
Quarter: 2019Q2

REPORT INFORMATION
  Report Type: Report from Study
  Country: GB (occurrence: GB)
  Receive Date: 20180726
  Receipt Date: 20190403
  Transmission Date: 20190711
  Serious: Yes (Hospitalization, Other)
  Sender: FDA-Public Use
  Company Number: GB-BRISTOL-MYERS SQUIBB COMPANY-BMS-2017-088718

PATIENT
  Sex: Female

DRUGS (1)
  1. ABATACEPT [Suspect]
     Active Substance: ABATACEPT
     Indication: RHEUMATOID ARTHRITIS
     Dosage: 125 MG, QWK
     Route: 058
     Dates: start: 20160512

REACTIONS (8)
  - Hand deformity [Unknown]
  - Condition aggravated [Unknown]
  - Adverse event [Unknown]
  - Oropharyngeal pain [Unknown]
  - Eye infection [Unknown]
  - Lower respiratory tract infection [Unknown]
  - Eye ulcer [Unknown]
  - Malaise [Unknown]
